FAERS Safety Report 4727547-2 (Version None)
Quarter: 2005Q3

REPORT INFORMATION
  Report Type: 
  Country: None (occurrence: None)
  Receive Date: 20050727
  Receipt Date: 20050727
  Transmission Date: 20060218
  Serious: No
  Sender: FDA-Public Use
  Company Number: None

PATIENT
  Sex: Female
  Weight: 95.4 kg

DRUGS (2)
  1. CETUXIMAB 250MG BMS [Suspect]
     Indication: RECTAL CANCER
     Dosage: 250MG QWEEKX9 WEEKS INTRAVENOU
     Route: 042
     Dates: start: 20050711, end: 20050725
  2. XELODA [Suspect]
     Indication: RECTAL CANCER
     Dosage: 700 MG/M2 M-F WITH XRT ORAL
     Route: 048
     Dates: start: 20050711, end: 20050725

REACTIONS (1)
  - DIARRHOEA [None]
